FAERS Safety Report 10069661 (Version 1)
Quarter: 2014Q2

REPORT INFORMATION
  Report Type: Spontaneous
  Country: DE (occurrence: DE)
  Receive Date: 20140410
  Receipt Date: 20140410
  Transmission Date: 20141212
  Serious: Yes (Death)
  Sender: FDA-Public Use
  Company Number: DE-BRISTOL-MYERS SQUIBB COMPANY-20578969

PATIENT
  Age: 78 Year
  Sex: Male
  Weight: 97 kg

DRUGS (2)
  1. ELIQUIS [Suspect]
     Indication: ANTICOAGULANT THERAPY
     Dates: start: 20131010, end: 20131116
  2. TICAGRELOR [Suspect]
     Indication: ANTICOAGULANT THERAPY

REACTIONS (3)
  - Coagulopathy [Fatal]
  - Ventricular tachycardia [Fatal]
  - Haemorrhage [Fatal]
